FAERS Safety Report 4387203-X (Version None)
Quarter: 2004Q2

REPORT INFORMATION
  Report Type: 
  Country: None (occurrence: None)
  Receive Date: 20040630
  Receipt Date: 20040323
  Transmission Date: 20050107
  Serious: No
  Sender: FDA-Public Use
  Company Number: US-GLAXOSMITHKLINE-A0504229A

PATIENT
  Sex: Male

DRUGS (1)
  1. ADVAIR HFA [Suspect]
     Indication: BRONCHOSPASM
     Route: 055

REACTIONS (3)
  - ANOREXIA [None]
  - ASTHENIA [None]
  - DIZZINESS [None]
